FAERS Safety Report 4991482-5 (Version None)
Quarter: 2006Q2

REPORT INFORMATION
  Report Type: 
  Country: None (occurrence: None)
  Receive Date: 20060502
  Receipt Date: 20060416
  Transmission Date: 20061013
  Serious: Yes (Other)
  Sender: FDA-Public Use
  Company Number: 2006RL000134

PATIENT
  Age: 52 Year
  Sex: Male

DRUGS (4)
  1. PROPRANOLOL HYDROCHLORIDE [Suspect]
     Indication: PORTAL HYPERTENSION
  2. RIBAVIRIN [Suspect]
     Indication: HEPATITIS C
  3. PEGYLATED INTERFERON AFA-2A (PEGINTERFERON ALFA-2A) [Suspect]
     Indication: HEPATITIS C
  4. G-CSF (GRANULOCYTE COLONY STIMULATING FACTOR) [Suspect]
     Indication: LEUKOPENIA

REACTIONS (21)
  - ACANTHOSIS [None]
  - DEPRESSED MOOD [None]
  - DRUG ERUPTION [None]
  - EXCORIATION [None]
  - IRRITABILITY [None]
  - LETHARGY [None]
  - LEUKOPENIA [None]
  - LICHENOID KERATOSIS [None]
  - LIP EROSION [None]
  - MOUTH PLAQUE [None]
  - MUCOSAL EROSION [None]
  - PIGMENTATION BUCCAL [None]
  - PORTAL HYPERTENSION [None]
  - POST INFLAMMATORY PIGMENTATION CHANGE [None]
  - RASH [None]
  - RASH PAPULOSQUAMOUS [None]
  - RASH PRURITIC [None]
  - SCAB [None]
  - SKIN OEDEMA [None]
  - THERAPY NON-RESPONDER [None]
  - VARICES OESOPHAGEAL [None]
